FAERS Safety Report 7657285-8 (Version None)
Quarter: 2011Q3

REPORT INFORMATION
  Report Type: 
  Country: None (occurrence: None)
  Receive Date: 20110804
  Receipt Date: 20110726
  Transmission Date: 20111222
  Serious: Yes (Hospitalization, Other)
  Sender: FDA-Public Use
  Company Number: PHHY2011JP67956

PATIENT
  Age: 51 Year
  Sex: Female

DRUGS (8)
  1. REZALTAS COMBINATION [Concomitant]
     Dosage: UNK UKN, UNK
     Route: 048
     Dates: start: 20110709
  2. ASPIRIN [Concomitant]
     Dosage: UNK UKN, UNK
     Route: 048
     Dates: start: 20110709
  3. ALLOZYM [Concomitant]
     Dosage: UNK UKN, UNK
     Route: 048
     Dates: start: 20110709
  4. CRESTOR [Concomitant]
     Dosage: UNK UKN, UNK
     Route: 048
     Dates: start: 20110709
  5. EQUA [Suspect]
     Indication: DIABETES MELLITUS
     Dosage: UNK UKN, UNK
     Route: 048
     Dates: start: 20110709
  6. RASILEZ [Suspect]
     Indication: HYPERTENSION
     Dosage: 150 MG, DAILY
     Route: 048
     Dates: start: 20110709
  7. FRANDOL [Suspect]
     Dosage: UNK UKN, UNK
     Route: 062
     Dates: start: 20110709
  8. SPIRONOLACTONE [Concomitant]
     Dosage: UNK UKN, UNK
     Route: 048
     Dates: start: 20110709

REACTIONS (4)
  - RASH GENERALISED [None]
  - HEADACHE [None]
  - RENAL IMPAIRMENT [None]
  - PYREXIA [None]
